FAERS Safety Report 20499577 (Version 2)
Quarter: 2022Q1

REPORT INFORMATION
  Report Type: Spontaneous
  Country: PT (occurrence: PT)
  Receive Date: 20220222
  Receipt Date: 20220225
  Transmission Date: 20220423
  Serious: Yes (Death, Other)
  Sender: FDA-Public Use
  Company Number: PT-ASTELLAS-2022US006555

PATIENT
  Sex: Male

DRUGS (1)
  1. GILTERITINIB [Suspect]
     Active Substance: GILTERITINIB
     Indication: Acute myeloid leukaemia
     Route: 065

REACTIONS (2)
  - Pneumonia [Fatal]
  - Drug ineffective [Unknown]
